FAERS Safety Report 19185586 (Version 2)
Quarter: 2021Q2

REPORT INFORMATION
  Report Type: Spontaneous
  Country: PL (occurrence: PL)
  Receive Date: 20210427
  Receipt Date: 20210428
  Transmission Date: 20210717
  Serious: Yes (Hospitalization, Other)
  Sender: FDA-Public Use
  Company Number: PL-NOVOPROD-804316

PATIENT
  Age: 23 Year
  Sex: Female
  Weight: 81 kg

DRUGS (8)
  1. NOVORAPID [Suspect]
     Active Substance: INSULIN ASPART
     Dosage: DECREASED TO 30?34 UNITS AFTER THE DELIVERY
     Route: 065
  2. LEVEMIR PENFILL [Suspect]
     Active Substance: INSULIN DETEMIR
     Dosage: 73 IU, QD
     Route: 065
  3. LEVEMIR PENFILL [Suspect]
     Active Substance: INSULIN DETEMIR
     Dosage: DECREASED TO 30?34 UNITS AFTER THE DELIVERY
     Route: 065
  4. DUPHASTON [Concomitant]
     Active Substance: DYDROGESTERONE
     Dosage: 1 TABLET DAILY
     Route: 048
  5. LEVEMIR PENFILL [Suspect]
     Active Substance: INSULIN DETEMIR
     Indication: TYPE 1 DIABETES MELLITUS
     Dosage: 16 IU, QD
     Route: 065
  6. ACARD [ACETYLSALICYLIC ACID] [Concomitant]
     Active Substance: ASPIRIN
     Indication: PROPHYLAXIS
     Dosage: UNK
     Route: 048
  7. NOVORAPID [Suspect]
     Active Substance: INSULIN ASPART
     Indication: TYPE 1 DIABETES MELLITUS
     Dosage: DAILY DOSE OF 33?37 UNITS DURING 1ST TRIMESTER,
     Route: 065
  8. NOVORAPID [Suspect]
     Active Substance: INSULIN ASPART
     Dosage: 116 IU, QD
     Route: 065

REACTIONS (7)
  - Hyperglycaemia [Unknown]
  - Hypoglycaemia [Unknown]
  - Maternal exposure during pregnancy [Recovered/Resolved]
  - Oligohydramnios [Recovered/Resolved]
  - Perineal injury [Unknown]
  - Weight increased [Unknown]
  - Premature delivery [Recovered/Resolved]

NARRATIVE: CASE EVENT DATE: 20201203
